FAERS Safety Report 23310011 (Version 2)
Quarter: 2023Q4

REPORT INFORMATION
  Report Type: Spontaneous
  Country: GB (occurrence: GB)
  Receive Date: 20231218
  Receipt Date: 20231226
  Transmission Date: 20240110
  Serious: Yes (Disabling, Other)
  Sender: FDA-Public Use
  Company Number: None

PATIENT
  Age: 34 Year
  Sex: Female
  Weight: 75 kg

DRUGS (1)
  1. BOTOX [Suspect]
     Active Substance: ONABOTULINUMTOXINA
     Indication: Facial paralysis
     Dosage: TIME INTERVAL: AS NECESSARY
     Route: 030
     Dates: start: 20231129

REACTIONS (6)
  - Paralysis [Not Recovered/Not Resolved]
  - Product administered at inappropriate site [Unknown]
  - Eyelid ptosis [Unknown]
  - Facial paralysis [Unknown]
  - Facial asymmetry [Unknown]
  - Pain [Unknown]

NARRATIVE: CASE EVENT DATE: 20231129
